FAERS Safety Report 21853124 (Version 1)
Quarter: 2023Q1

REPORT INFORMATION
  Report Type: Report from Study
  Country: CA (occurrence: CA)
  Receive Date: 20230112
  Receipt Date: 20230112
  Transmission Date: 20230417
  Serious: Yes (Hospitalization, Other)
  Sender: FDA-Public Use
  Company Number: CA-MYLANLABS-2022M1146128

PATIENT
  Sex: Male

DRUGS (1)
  1. HULIO [Suspect]
     Active Substance: ADALIMUMAB-FKJP
     Indication: Rheumatoid arthritis
     Dosage: 40 MILLIGRAM, Q2W
     Route: 058

REACTIONS (7)
  - Pneumonia [Unknown]
  - Weight decreased [Unknown]
  - Asthenia [Unknown]
  - Arthralgia [Unknown]
  - Cough [Recovering/Resolving]
  - Oedema peripheral [Unknown]
  - Body temperature increased [Unknown]
